FAERS Safety Report 5119790-8 (Version None)
Quarter: 2006Q3

REPORT INFORMATION
  Report Type: 
  Country: None (occurrence: None)
  Receive Date: 20060929
  Receipt Date: 20060919
  Transmission Date: 20061208
  Serious: Yes (Hospitalization)
  Sender: FDA-Public Use
  Company Number: 2006BI010379

PATIENT
  Age: 56 Year
  Sex: Female

DRUGS (1)
  1. AVONEX [Suspect]
     Indication: MULTIPLE SCLEROSIS
     Dosage: 30 UG; QW; IM
     Route: 030
     Dates: start: 20060505

REACTIONS (6)
  - CELLULITIS [None]
  - IMPAIRED HEALING [None]
  - INFECTION [None]
  - SKIN GRAFT [None]
  - SKIN LACERATION [None]
  - SKIN ULCER [None]
